FAERS Safety Report 10084193 (Version 6)
Quarter: 2015Q2

REPORT INFORMATION
  Report Type: Spontaneous
  Country: US (occurrence: None)
  Receive Date: 20140415
  Receipt Date: 20150518
  Transmission Date: 20150821
  Serious: Yes (Other)
  Sender: FDA-Public Use
  Company Number: ADR-2014-00593

PATIENT
  Age: 48 Year
  Sex: Female

DRUGS (7)
  1. BUPIVACAINE (INTRATHECAL) 30 MG/ML [Suspect]
     Active Substance: BUPIVACAINE
  2. MORPHINE (INTRATHECAL) [Suspect]
     Active Substance: MORPHINE
  3. DILAUDID [Suspect]
     Active Substance: HYDROMORPHONE HYDROCHLORIDE
     Route: 048
  4. BACLOFEN. [Suspect]
     Active Substance: BACLOFEN
     Indication: PAIN
  5. PERCOCET [Suspect]
     Active Substance: ACETAMINOPHEN\OXYCODONE HYDROCHLORIDE
  6. HYDROMORPHONE [Suspect]
     Active Substance: HYDROMORPHONE
  7. FENTANYL. [Suspect]
     Active Substance: FENTANYL
     Indication: PAIN

REACTIONS (25)
  - Psychogenic pain disorder [None]
  - Drug tolerance [None]
  - Device alarm issue [None]
  - Feeling hot [None]
  - Headache [None]
  - Fall [None]
  - Implant site swelling [None]
  - Drug dose omission [None]
  - Drug effect variable [None]
  - Weight increased [None]
  - Withdrawal syndrome [None]
  - Pain [None]
  - Hyperhidrosis [None]
  - Malaise [None]
  - Diarrhoea [None]
  - Device deployment issue [None]
  - Neck pain [None]
  - Hypoaesthesia [None]
  - Loss of consciousness [None]
  - Drug ineffective [None]
  - Tremor [None]
  - Device malfunction [None]
  - Back pain [None]
  - Intervertebral disc protrusion [None]
  - Abasia [None]

NARRATIVE: CASE EVENT DATE: 20140304
